FAERS Safety Report 10619089 (Version 1)
Quarter: 2014Q4

REPORT INFORMATION
  Report Type: Spontaneous
  Country: US (occurrence: None)
  Receive Date: 20141126
  Receipt Date: 20141126
  Transmission Date: 20150529
  Serious: Yes (Hospitalization)
  Sender: FDA-Public Use
  Company Number: US-001458

PATIENT
  Age: 58 Year
  Sex: Male

DRUGS (1)
  1. GATTEX [Suspect]
     Active Substance: TEDUGLUTIDE\WATER
     Indication: SHORT-BOWEL SYNDROME
     Dosage: DF
     Route: 058
     Dates: start: 201306, end: 20141110

REACTIONS (4)
  - Loss of consciousness [None]
  - Drug dose omission [None]
  - Abdominal pain upper [None]
  - Computerised tomogram abnormal [None]

NARRATIVE: CASE EVENT DATE: 201411
